FAERS Safety Report 7130295-5 (Version None)
Quarter: 2010Q4

REPORT INFORMATION
  Report Type: 
  Country: None (occurrence: None)
  Receive Date: 20101201
  Receipt Date: 20101118
  Transmission Date: 20110411
  Serious: Yes (Other)
  Sender: FDA-Public Use
  Company Number: PHHY2010FR80285

PATIENT
  Age: 53 Year
  Sex: Female

DRUGS (3)
  1. ACLASTA [Suspect]
     Indication: OSTEOPOROSIS
     Dosage: 5 MG
     Dates: start: 20100901
  2. NEXIUM [Concomitant]
  3. PIASCLEDINE [Concomitant]

REACTIONS (12)
  - ANXIETY [None]
  - APHTHOUS STOMATITIS [None]
  - CONCOMITANT DISEASE AGGRAVATED [None]
  - DISCOMFORT [None]
  - GASTROOESOPHAGEAL REFLUX DISEASE [None]
  - GINGIVAL PAIN [None]
  - HEADACHE [None]
  - INFLUENZA LIKE ILLNESS [None]
  - JOINT DISLOCATION [None]
  - NAUSEA [None]
  - PAIN IN JAW [None]
  - TOOTHACHE [None]
